FAERS Safety Report 7081986 (Version 10)
Quarter: 2013Q4

REPORT INFORMATION
  Report Type: Spontaneous
  Country: US (occurrence: US)
  Receive Date: 20090814
  Receipt Date: 20131221
  Transmission Date: 20140711
  Serious: Yes (Death, Other)
  Sender: FDA-Public Use
  Company Number: PHEH2009US08956

PATIENT
  Age: 73 Year
  Sex: Female

DRUGS (6)
  1. ZOMETA [Suspect]
     Route: 041
  2. ALPHAGAN [Concomitant]
  3. ASPIRIN [Concomitant]
  4. GABAPENTIN [Concomitant]
  5. LOTEMAX [Concomitant]
  6. MAXZIDE [Concomitant]

REACTIONS (57)
  - Death [Fatal]
  - Osteonecrosis of jaw [Unknown]
  - Pain [Unknown]
  - Infection [Unknown]
  - Deformity [Unknown]
  - Injury [Unknown]
  - Emotional distress [Unknown]
  - Anxiety [Unknown]
  - Corneal degeneration [Unknown]
  - Hepatomegaly [Unknown]
  - Bladder prolapse [Unknown]
  - Hepatic steatosis [Unknown]
  - Spinal disorder [Unknown]
  - Bone lesion [Unknown]
  - Osteoarthritis [Unknown]
  - Hiatus hernia [Unknown]
  - Tendon rupture [Unknown]
  - Tendon disorder [Unknown]
  - Hyperlipidaemia [Unknown]
  - Arthritis [Unknown]
  - Lipoma [Unknown]
  - Metastasis [Unknown]
  - Pancreatic disorder [Unknown]
  - Intervertebral disc space narrowing [Unknown]
  - Spinal osteoarthritis [Unknown]
  - Cervical spinal stenosis [Unknown]
  - Kyphosis [Unknown]
  - Pulmonary mass [Unknown]
  - Myelopathy [Unknown]
  - Atelectasis [Unknown]
  - Extradural haematoma [Unknown]
  - Sinus arrhythmia [Unknown]
  - Urinary tract infection [Unknown]
  - Osteolysis [Unknown]
  - Soft tissue mass [Unknown]
  - Dental caries [Unknown]
  - Osteomyelitis [Unknown]
  - Pleural effusion [Unknown]
  - Granuloma [Unknown]
  - Exposed bone in jaw [Unknown]
  - Brain oedema [Unknown]
  - Central nervous system lesion [Unknown]
  - Metastases to liver [Not Recovered/Not Resolved]
  - Anaemia [Unknown]
  - Rib fracture [Unknown]
  - Metastases to bone [Unknown]
  - Cerebral arteriosclerosis [Unknown]
  - Vascular calcification [Unknown]
  - Myocardial infarction [Unknown]
  - Metastases to central nervous system [Unknown]
  - Dehydration [Unknown]
  - Swelling face [Unknown]
  - Corneal dystrophy [Unknown]
  - Loose tooth [Unknown]
  - Metastases to spine [Unknown]
  - Intervertebral disc protrusion [Unknown]
  - Fall [Unknown]
